FAERS Safety Report 17347811 (Version 1)
Quarter: 2020Q1

REPORT INFORMATION
  Report Type: Report from Study
  Country: US (occurrence: US)
  Receive Date: 20200129
  Receipt Date: 20200129
  Transmission Date: 20200409
  Serious: No
  Sender: FDA-Public Use
  Company Number: US-EXELIXIS-CABO-19025283

PATIENT
  Sex: Male
  Weight: 85.26 kg

DRUGS (3)
  1. CABOMETYX [Suspect]
     Active Substance: CABOZANTINIB S-MALATE
     Dosage: 60 MG, QD
  2. CABOMETYX [Suspect]
     Active Substance: CABOZANTINIB S-MALATE
     Indication: RENAL CANCER
     Dosage: 40 MG, QD (7 IN THE EVENING, WITHOUT FOOD)
     Dates: start: 20191010
  3. PREDNISONE. [Concomitant]
     Active Substance: PREDNISONE
     Dosage: UNK

REACTIONS (14)
  - Dermatitis acneiform [Unknown]
  - Pigmentation disorder [Unknown]
  - Blister [Not Recovered/Not Resolved]
  - Aspartate aminotransferase increased [Unknown]
  - Rash [Recovered/Resolved]
  - Anaemia [Unknown]
  - Diabetes mellitus [Unknown]
  - Pyrexia [Unknown]
  - Dry mouth [Unknown]
  - Taste disorder [Unknown]
  - Myasthenia gravis [Unknown]
  - Dry skin [Unknown]
  - Pain in extremity [Unknown]
  - Alanine aminotransferase increased [Unknown]
